FAERS Safety Report 11633621 (Version 5)
Quarter: 2016Q1

REPORT INFORMATION
  Report Type: Report from Study
  Country: TW (occurrence: TW)
  Receive Date: 20151015
  Receipt Date: 20160223
  Transmission Date: 20160525
  Serious: No
  Sender: FDA-Public Use
  Company Number: PHHY2015TW125209

PATIENT
  Age: 73 Year
  Sex: Male

DRUGS (5)
  1. SHINCORT [Concomitant]
     Indication: PRODUCT USED FOR UNKNOWN INDICATION
     Dosage: 2 ML, UNK
     Route: 065
     Dates: start: 20150325, end: 20150325
  2. TASIGNA [Suspect]
     Active Substance: NILOTINIB
     Indication: PHILADELPHIA CHROMOSOME POSITIVE
     Dosage: 600 MG, UNK
     Route: 048
     Dates: start: 20140118, end: 20140211
  3. TASIGNA [Suspect]
     Active Substance: NILOTINIB
     Dosage: 600 OT, UNK
     Route: 048
     Dates: start: 20140716, end: 20140812
  4. TASIGNA [Suspect]
     Active Substance: NILOTINIB
     Indication: CHRONIC MYELOID LEUKAEMIA
     Dosage: 300 OT, UNK
     Route: 048
     Dates: start: 20140212, end: 20140617
  5. TASIGNA [Suspect]
     Active Substance: NILOTINIB
     Dosage: 450 OT, UNK
     Route: 048
     Dates: start: 20140618, end: 20140715

REACTIONS (1)
  - Platelet count decreased [Recovered/Resolved]

NARRATIVE: CASE EVENT DATE: 20140212
